FAERS Safety Report 13652558 (Version 1)
Quarter: 2017Q2

REPORT INFORMATION
  Report Type: Spontaneous
  Country: US (occurrence: US)
  Receive Date: 20170614
  Receipt Date: 20170614
  Transmission Date: 20170830
  Serious: No
  Sender: FDA-Public Use
  Company Number: US-ROCHE-1367036

PATIENT
  Sex: Female

DRUGS (1)
  1. XELODA [Suspect]
     Active Substance: CAPECITABINE
     Indication: COLON CANCER
     Dosage: 2 AM AND 2 PM - 7DAYS ON, 7 DAYS OFF
     Route: 048
     Dates: start: 20140218

REACTIONS (2)
  - Muscular weakness [Unknown]
  - Malaise [Unknown]
